FAERS Safety Report 4936710-7 (Version None)
Quarter: 2006Q1

REPORT INFORMATION
  Report Type: 
  Country: None (occurrence: None)
  Receive Date: 20060302
  Receipt Date: 20060220
  Transmission Date: 20060701
  Serious: Yes (Hospitalization)
  Sender: FDA-Public Use
  Company Number: MEDI-0004213

PATIENT
  Age: 5 Month
  Sex: Female

DRUGS (3)
  1. SYNAGIS [Suspect]
     Indication: ANTIVIRAL PROPHYLAXIS
     Dosage: 1 IN 30 D, INTRAMUSCULAR
     Route: 030
     Dates: end: 20060119
  2. PREVENAR (PNEUMOCOCCAL CONJUGATE VACCINE) [Suspect]
     Dosage: INTRAMUSCULAR
     Route: 030
     Dates: end: 20060119
  3. PENTAVAC (DIPHTHERIA TOXOID, TETANUS TOXOID, HAEMOPHILUS INFLUENZAE TY [Suspect]
     Dosage: INTRAMUSCULAR
     Route: 030
     Dates: end: 20060119

REACTIONS (1)
  - ASTHMA [None]
